FAERS Safety Report 11767919 (Version 1)
Quarter: 2015Q4

REPORT INFORMATION
  Report Type: Spontaneous
  Country: US (occurrence: None)
  Receive Date: 20151120
  Receipt Date: 20151120
  Transmission Date: 20160304
  Serious: Yes (Other)
  Sender: FDA-Public Use
  Company Number: None

PATIENT
  Age: 43 Year
  Sex: Female
  Weight: 63.5 kg

DRUGS (6)
  1. GABAPENTIN. [Suspect]
     Active Substance: GABAPENTIN
     Indication: MIGRAINE
     Dosage: 2 T
     Route: 048
     Dates: start: 20150801, end: 20151119
  2. GIANVI (BIRTH CONTROL) [Concomitant]
  3. BYSTOLIC [Concomitant]
     Active Substance: NEBIVOLOL HYDROCHLORIDE
  4. VITAMIN B COMPLEX [Concomitant]
     Active Substance: CYANOCOBALAMIN\DEXPANTHENOL\NIACINAMIDE\PYRIDOXINE HYDROCHLORIDE\RIBOFLAVIN 5^-PHOSPHATE SODIUM\THIAMINE HYDROCHLORIDE\VITAMIN B COMPLEX
  5. GABAPENTIN. [Suspect]
     Active Substance: GABAPENTIN
     Indication: NEURALGIA
     Dosage: 2 T
     Route: 048
     Dates: start: 20150801, end: 20151119
  6. GABAPENTIN. [Suspect]
     Active Substance: GABAPENTIN
     Indication: ROAD TRAFFIC ACCIDENT
     Dosage: 2 T
     Route: 048
     Dates: start: 20150801, end: 20151119

REACTIONS (10)
  - Nausea [None]
  - Drug withdrawal syndrome [None]
  - Insomnia [None]
  - Confusional state [None]
  - Cold sweat [None]
  - Dizziness [None]
  - Vomiting [None]
  - Dry mouth [None]
  - Migraine [None]
  - Pain [None]

NARRATIVE: CASE EVENT DATE: 20151119
